FAERS Safety Report 11664587 (Version 1)
Quarter: 2015Q4

REPORT INFORMATION
  Report Type: Report from Study
  Country: US (occurrence: US)
  Receive Date: 20151027
  Receipt Date: 20151027
  Transmission Date: 20160304
  Serious: No
  Sender: FDA-Public Use
  Company Number: PHHY2013US025378

PATIENT
  Age: 8 Year
  Sex: Male

DRUGS (8)
  1. EXJADE [Suspect]
     Active Substance: DEFERASIROX
     Indication: HAEMOSIDERINURIA
     Dosage: 375 OT
     Route: 048
     Dates: start: 20100121
  2. EXJADE [Suspect]
     Active Substance: DEFERASIROX
     Dosage: 500 OT
     Route: 048
     Dates: start: 20121204, end: 20130124
  3. EXJADE [Suspect]
     Active Substance: DEFERASIROX
     Dosage: 500 OT
     Route: 048
     Dates: start: 20121107, end: 20121126
  4. EXJADE [Suspect]
     Active Substance: DEFERASIROX
     Dosage: 500 OT
     Route: 048
     Dates: start: 20120814
  5. EXJADE [Suspect]
     Active Substance: DEFERASIROX
     Dosage: 500 OT
     Route: 048
     Dates: start: 20130125, end: 20130925
  6. EXJADE [Suspect]
     Active Substance: DEFERASIROX
     Dosage: 500 OT
     Route: 048
     Dates: start: 20140522, end: 201410
  7. EXJADE [Suspect]
     Active Substance: DEFERASIROX
     Dosage: 500 OT
     Route: 048
     Dates: start: 20131106, end: 20140504
  8. EXJADE [Suspect]
     Active Substance: DEFERASIROX
     Dosage: 500 OT
     Route: 048
     Dates: start: 201410, end: 201502

REACTIONS (11)
  - Oral pain [Recovered/Resolved]
  - Upper respiratory tract infection [Recovered/Resolved]
  - Pruritus [Not Recovered/Not Resolved]
  - Cough [Recovered/Resolved]
  - Otitis media acute [Recovered/Resolved]
  - Influenza [Recovered/Resolved]
  - Pyrexia [Recovered/Resolved]
  - Pyrexia [Recovered/Resolved]
  - Vomiting [Recovered/Resolved]
  - Pyrexia [Recovered/Resolved]
  - Oropharyngeal pain [Recovered/Resolved]

NARRATIVE: CASE EVENT DATE: 20121107
